FAERS Safety Report 14133198 (Version 1)
Quarter: 2017Q4

REPORT INFORMATION
  Report Type: Spontaneous
  Country: GB (occurrence: GB)
  Receive Date: 20171027
  Receipt Date: 20171027
  Transmission Date: 20180321
  Serious: Yes (Hospitalization)
  Sender: FDA-Public Use
  Company Number: GB-ACCORD-060161

PATIENT
  Age: 26 Year
  Sex: Female

DRUGS (4)
  1. AMOXICILLIN SODIUM/CLAVULANATE POTASSIUM [Concomitant]
  2. PARACETAMOL [Concomitant]
     Active Substance: ACETAMINOPHEN
  3. OLANZAPINE. [Concomitant]
     Active Substance: OLANZAPINE
  4. SERTRALINE [Suspect]
     Active Substance: SERTRALINE HYDROCHLORIDE
     Indication: DEPRESSION
     Route: 048
     Dates: start: 201706, end: 20171002

REACTIONS (2)
  - Periorbital cellulitis [Recovering/Resolving]
  - Eye swelling [Unknown]
